FAERS Safety Report 8830049 (Version 1)
Quarter: 2012Q4

REPORT INFORMATION
  Report Type: 
  Country: US (occurrence: US)
  Receive Date: 20121008
  Receipt Date: 20121008
  Transmission Date: 20130627
  Serious: No
  Sender: FDA-Public Use
  Company Number: US-PFIZER INC-2012244946

PATIENT
  Age: 81 Year
  Sex: Male
  Weight: 83.9 kg

DRUGS (3)
  1. VIAGRA [Suspect]
     Indication: ERECTILE DYSFUNCTION
     Dosage: 50 mg, UNK
     Dates: start: 20120930
  2. LOSARTAN [Concomitant]
     Indication: HYPERTENSION
     Dosage: 100 mg, daily
     Dates: start: 2011
  3. WARFARIN [Concomitant]
     Indication: THROMBOSIS
     Dosage: 5 mg, daily

REACTIONS (2)
  - Drug ineffective [Unknown]
  - Frustration [Unknown]
